FAERS Safety Report 21908617 (Version 1)
Quarter: 2023Q1

REPORT INFORMATION
  Report Type: Spontaneous
  Country: US (occurrence: None)
  Receive Date: 20230124
  Receipt Date: 20230124
  Transmission Date: 20230417
  Serious: Yes (Hospitalization)
  Sender: FDA-Public Use
  Company Number: None

PATIENT
  Age: 73 Year
  Sex: Male
  Weight: 106.59 kg

DRUGS (2)
  1. IBUPROFEN [Suspect]
     Active Substance: IBUPROFEN
     Indication: Pain
     Dates: end: 20210728
  2. BACTRIM [Suspect]
     Active Substance: SULFAMETHOXAZOLE\TRIMETHOPRIM

REACTIONS (12)
  - Asthenia [None]
  - Fatigue [None]
  - Hypophagia [None]
  - Toothache [None]
  - Blood pressure decreased [None]
  - Haemoglobin decreased [None]
  - White blood cell count increased [None]
  - Blood sodium decreased [None]
  - Sepsis [None]
  - Acute kidney injury [None]
  - Duodenal ulcer haemorrhage [None]
  - Gastrointestinal haemorrhage [None]

NARRATIVE: CASE EVENT DATE: 20210729
